FAERS Safety Report 21074456 (Version 1)
Quarter: 2022Q3

REPORT INFORMATION
  Report Type: Spontaneous
  Country: CH (occurrence: CH)
  Receive Date: 20220713
  Receipt Date: 20220713
  Transmission Date: 20221026
  Serious: Yes (Other)
  Sender: FDA-Public Use
  Company Number: CH-002147023-NVSC2022CH147704

PATIENT
  Sex: Male

DRUGS (3)
  1. PASIREOTIDE [Suspect]
     Active Substance: PASIREOTIDE
     Indication: Nelson^s syndrome
     Dosage: UNK
  2. CABERGOLINE [Suspect]
     Active Substance: CABERGOLINE
     Indication: Nelson^s syndrome
     Dosage: UNK
  3. EDOTREOTIDE\LUTETIUM LU-177 [Suspect]
     Active Substance: EDOTREOTIDE\LUTETIUM LU-177
     Indication: Nelson^s syndrome
     Dosage: UNK

REACTIONS (3)
  - Pituitary tumour benign [Unknown]
  - Malignant neoplasm progression [Unknown]
  - Product use in unapproved indication [Recovered/Resolved]
